FAERS Safety Report 9252201 (Version 3)
Quarter: 2013Q3

REPORT INFORMATION
  Report Type: Spontaneous
  Country: US (occurrence: US)
  Receive Date: 20130424
  Receipt Date: 20130927
  Transmission Date: 20140515
  Serious: Yes (Hospitalization, Disabling)
  Sender: FDA-Public Use
  Company Number: US-ASTRAZENECA-2013SE27269

PATIENT
  Age: 48 Year
  Sex: Female
  Weight: 97.5 kg

DRUGS (13)
  1. NEXIUM [Suspect]
     Indication: GASTROOESOPHAGEAL REFLUX DISEASE
     Dosage: TWICE DAILY MORNING AND EVENING
     Route: 048
     Dates: start: 2006, end: 2010
  2. NEXIUM [Suspect]
     Indication: GASTROOESOPHAGEAL REFLUX DISEASE
     Route: 048
     Dates: start: 200608, end: 200703
  3. ROLAIDS [Concomitant]
     Indication: DYSPEPSIA
     Dosage: AS NEEDED
  4. TUMS [Concomitant]
     Indication: DYSPEPSIA
     Dosage: AS NEEDED
  5. FLEXERIL [Concomitant]
     Dates: start: 200803, end: 200806
  6. HYDROCODONE [Concomitant]
     Dates: start: 200803, end: 200806
  7. NAPROXEN [Concomitant]
     Dates: start: 20100821
  8. LASIX [Concomitant]
     Dates: start: 20080320
  9. AMITRIPTYLINE [Concomitant]
     Dates: start: 20080320
  10. ALBUTEROL [Concomitant]
     Dates: start: 20080320
  11. IBUPROFEN [Concomitant]
     Dates: start: 20080320
  12. POTASSIUM [Concomitant]
     Dates: start: 20080320
  13. PREVACID [Concomitant]
     Dates: start: 2007

REACTIONS (14)
  - Diabetes mellitus [Unknown]
  - Chronic obstructive pulmonary disease [Unknown]
  - Musculoskeletal discomfort [Unknown]
  - Lower limb fracture [Unknown]
  - Pneumonia [Unknown]
  - Osteoporosis [Unknown]
  - Bone disorder [Unknown]
  - Multiple fractures [Unknown]
  - Anxiety [Unknown]
  - Fracture [Unknown]
  - Bone pain [Unknown]
  - Dysphagia [Unknown]
  - Type 2 diabetes mellitus [Unknown]
  - Depression [Unknown]
